FAERS Safety Report 10709452 (Version 1)
Quarter: 2015Q1

REPORT INFORMATION
  Report Type: Spontaneous
  Country: US (occurrence: None)
  Receive Date: 20150113
  Receipt Date: 20150113
  Transmission Date: 20150721
  Serious: Yes (Hospitalization)
  Sender: FDA-Public Use
  Company Number: None

PATIENT
  Age: 78 Year
  Sex: Male
  Weight: 84 kg

DRUGS (8)
  1. ZOCOR [Concomitant]
     Active Substance: SIMVASTATIN
  2. REMERON [Concomitant]
     Active Substance: MIRTAZAPINE
  3. TRAZODONE [Concomitant]
     Active Substance: TRAZODONE HYDROCHLORIDE
  4. TICE BCG [Suspect]
     Active Substance: BACILLUS CALMETTE-GUERIN SUBSTRAIN TICE LIVE ANTIGEN
     Dates: start: 20140529
  5. FLOMAX [Concomitant]
     Active Substance: TAMSULOSIN HYDROCHLORIDE
  6. NORCO [Concomitant]
     Active Substance: ACETAMINOPHEN\HYDROCODONE BITARTRATE
  7. LISINOPRIL. [Concomitant]
     Active Substance: LISINOPRIL
  8. NORTRIPLYLINE [Concomitant]

REACTIONS (6)
  - Dyspnoea [None]
  - Dehydration [None]
  - Bacterial infection [None]
  - Cough [None]
  - Pneumonia [None]
  - Sputum discoloured [None]

NARRATIVE: CASE EVENT DATE: 20140603
